FAERS Safety Report 9337278 (Version 1)
Quarter: 2013Q2

REPORT INFORMATION
  Report Type: Spontaneous
  Country: US (occurrence: US)
  Receive Date: 20130607
  Receipt Date: 20130607
  Transmission Date: 20140414
  Serious: Yes (Other)
  Sender: FDA-Public Use
  Company Number: US-PFIZER INC-2013169018

PATIENT
  Sex: Male

DRUGS (2)
  1. GENOTROPIN MQ [Suspect]
     Indication: GROWTH HORMONE DEFICIENCY
     Dosage: 1.2 MG, 1X/DAY
     Route: 030
     Dates: start: 2011
  2. GENOTROPIN MQ [Suspect]
     Dosage: 2 MG, 1X/DAY
     Route: 030

REACTIONS (3)
  - Osteochondrosis [Not Recovered/Not Resolved]
  - Arthralgia [Not Recovered/Not Resolved]
  - Incorrect route of drug administration [Unknown]
